FAERS Safety Report 10215253 (Version 2)
Quarter: 2014Q3

REPORT INFORMATION
  Report Type: Report from Study
  Country: BR (occurrence: BR)
  Receive Date: 20140603
  Receipt Date: 20140702
  Transmission Date: 20150326
  Serious: Yes (Hospitalization, Other)
  Sender: FDA-Public Use
  Company Number: PHHY2014BR066853

PATIENT
  Age: 72 Year
  Sex: Female
  Weight: 72 kg

DRUGS (1)
  1. FORASEQ [Suspect]
     Active Substance: BUDESONIDE\FORMOTEROL FUMARATE
     Indication: ASTHMA
     Dosage: UNK
     Route: 055
     Dates: start: 20140523

REACTIONS (9)
  - Memory impairment [Recovering/Resolving]
  - Obstructive airways disorder [Recovering/Resolving]
  - Cardiomegaly [Recovering/Resolving]
  - Respiratory arrest [Unknown]
  - Dyspnoea [Recovering/Resolving]
  - Blood pressure fluctuation [Unknown]
  - Breast pain [Recovering/Resolving]
  - General physical health deterioration [Recovering/Resolving]
  - Headache [Unknown]

NARRATIVE: CASE EVENT DATE: 20140528
